FAERS Safety Report 6216306-X (Version None)
Quarter: 2009Q2

REPORT INFORMATION
  Report Type: 
  Country: None (occurrence: None)
  Receive Date: 20090605
  Receipt Date: 20090528
  Transmission Date: 20091009
  Serious: Yes (Hospitalization)
  Sender: FDA-Public Use
  Company Number: US-JNJFOC-20090506990

PATIENT
  Sex: Female
  Weight: 111.8 kg

DRUGS (39)
  1. GOLIMUMAB [Suspect]
     Route: 058
  2. GOLIMUMAB [Suspect]
     Route: 058
  3. GOLIMUMAB [Suspect]
     Route: 058
  4. GOLIMUMAB [Suspect]
     Route: 058
  5. GOLIMUMAB [Suspect]
     Route: 058
  6. GOLIMUMAB [Suspect]
     Route: 058
  7. GOLIMUMAB [Suspect]
     Route: 058
  8. GOLIMUMAB [Suspect]
     Route: 058
  9. GOLIMUMAB [Suspect]
     Route: 058
  10. GOLIMUMAB [Suspect]
     Route: 058
  11. GOLIMUMAB [Suspect]
     Route: 058
  12. GOLIMUMAB [Suspect]
     Route: 058
  13. GOLIMUMAB [Suspect]
     Route: 058
  14. GOLIMUMAB [Suspect]
     Route: 058
  15. GOLIMUMAB [Suspect]
     Route: 058
  16. GOLIMUMAB [Suspect]
     Route: 058
  17. GOLIMUMAB [Suspect]
     Route: 058
  18. GOLIMUMAB [Suspect]
     Route: 058
  19. GOLIMUMAB [Suspect]
     Route: 058
  20. GOLIMUMAB [Suspect]
     Route: 058
  21. GOLIMUMAB [Suspect]
     Route: 058
  22. GOLIMUMAB [Suspect]
     Route: 058
  23. GOLIMUMAB [Suspect]
     Indication: RHEUMATOID ARTHRITIS
     Route: 058
  24. PLACEBO [Suspect]
     Route: 058
  25. PLACEBO [Suspect]
     Route: 058
  26. PLACEBO [Suspect]
     Route: 058
  27. PLACEBO [Suspect]
     Route: 058
  28. PLACEBO [Suspect]
     Route: 058
  29. PLACEBO [Suspect]
     Indication: RHEUMATOID ARTHRITIS
     Route: 058
  30. TYLENOL (CAPLET) [Concomitant]
     Route: 048
  31. FLEXERIL [Concomitant]
     Route: 048
  32. PROTONIX [Concomitant]
     Route: 048
  33. VASOTEC [Concomitant]
     Route: 048
  34. LEVOXYL [Concomitant]
     Route: 048
  35. ULTRAM [Concomitant]
     Route: 048
  36. LEXAPRO [Concomitant]
     Route: 048
  37. CLIMARA [Concomitant]
     Route: 061
  38. PREDNISONE [Concomitant]
     Route: 048
  39. CLARITIN [Concomitant]
     Route: 048

REACTIONS (2)
  - SEPTIC SHOCK [None]
  - URINARY TRACT INFECTION [None]
